FAERS Safety Report 24901776 (Version 2)
Quarter: 2025Q1

REPORT INFORMATION
  Report Type: Spontaneous
  Country: US (occurrence: US)
  Receive Date: 20250129
  Receipt Date: 20250203
  Transmission Date: 20250409
  Serious: No
  Sender: SANOFI AVENTIS
  Company Number: US-SA-2025SA026973

PATIENT
  Sex: Female

DRUGS (1)
  1. DUPIXENT [Suspect]
     Active Substance: DUPILUMAB
     Indication: Nasal polyps
     Dosage: 300 MG, QOW
     Route: 058
     Dates: start: 202201

REACTIONS (5)
  - Paraesthesia [Unknown]
  - Nerve injury [Unknown]
  - Limb injury [Unknown]
  - Hypoaesthesia [Unknown]
  - Asthenia [Unknown]

NARRATIVE: CASE EVENT DATE: 20240301
